FAERS Safety Report 7884305-8 (Version None)
Quarter: 2011Q4

REPORT INFORMATION
  Report Type: 
  Country: None (occurrence: None)
  Receive Date: 20111102
  Receipt Date: 20111031
  Transmission Date: 20120403
  Serious: Yes (Death, Disabling)
  Sender: FDA-Public Use
  Company Number: GB-ROCHE-799905

PATIENT
  Age: 72 Year
  Sex: Female
  Weight: 38 kg

DRUGS (4)
  1. TRAZODONE HYDROCHLORIDE [Concomitant]
     Route: 048
  2. MABTHERA [Suspect]
     Indication: RHEUMATOID ARTHRITIS
     Dosage: DOSAGES/INTERVAL: 2
     Route: 042
     Dates: start: 20090301, end: 20100301
  3. VENTOLIN [Concomitant]
     Route: 055
  4. PREDNISOLONE [Concomitant]
     Indication: RHEUMATOID ARTHRITIS
     Route: 048

REACTIONS (7)
  - SEPSIS [None]
  - LOBAR PNEUMONIA [None]
  - DYSPNOEA [None]
  - CONDITION AGGRAVATED [None]
  - PRODUCTIVE COUGH [None]
  - INTERSTITIAL LUNG DISEASE [None]
  - BLOOD SODIUM DECREASED [None]
